FAERS Safety Report 4536927-X (Version None)
Quarter: 2004Q4

REPORT INFORMATION
  Report Type: 
  Country: None (occurrence: None)
  Receive Date: 20041220
  Receipt Date: 20041208
  Transmission Date: 20050328
  Serious: No
  Sender: FDA-Public Use
  Company Number: USA-2004-0017729

PATIENT
  Age: 37 Year
  Sex: Male

DRUGS (3)
  1. CEFDITOREN PIVOXIL (SIMILAR TO NDA 21-222)(CEFDITOREN PIVOXIL) OTHER [Suspect]
     Indication: PERIODONTITIS
     Dosage: 300 MG, DAILY, ORAL
     Route: 048
     Dates: start: 20041029, end: 20041030
  2. LOXOPROFEN SODIUM (LOXOPROFEN SODIUM) [Concomitant]
  3. LOXONIN (LOXOPROFEN SODIUM) [Concomitant]

REACTIONS (2)
  - GENERALISED OEDEMA [None]
  - MALAISE [None]
